FAERS Safety Report 15590895 (Version 1)
Quarter: 2018Q4

REPORT INFORMATION
  Report Type: Spontaneous
  Country: SG (occurrence: SG)
  Receive Date: 20181107
  Receipt Date: 20181107
  Transmission Date: 20190205
  Serious: Yes (Hospitalization, Other)
  Sender: FDA-Public Use
  Company Number: SG-GLAXOSMITHKLINE-SG2018202458

PATIENT
  Age: 3 Year

DRUGS (1)
  1. SALBUTAMOL [Suspect]
     Active Substance: ALBUTEROL
     Indication: PRODUCT USED FOR UNKNOWN INDICATION
     Dosage: OVERDOSE
     Route: 065

REACTIONS (3)
  - Tachycardia [Recovered/Resolved]
  - Accidental overdose [Unknown]
  - Hypokalaemia [Recovered/Resolved]
